FAERS Safety Report 24972657 (Version 2)
Quarter: 2025Q3

REPORT INFORMATION
  Report Type: Spontaneous
  Country: CA (occurrence: CA)
  Receive Date: 20250215
  Receipt Date: 20250711
  Transmission Date: 20251020
  Serious: Yes (Other)
  Sender: CELLTRION
  Company Number: CA-CELLTRION INC.-2025CA004130

PATIENT

DRUGS (2)
  1. INFLIXIMAB [Suspect]
     Active Substance: INFLIXIMAB
     Indication: Rheumatoid arthritis
     Dosage: MAINTENANCE - 120 MG, EVERY 14 DAYS/ 1 EVERY 2 WEEKS
     Route: 058
     Dates: start: 20230630
  2. INFLIXIMAB [Suspect]
     Active Substance: INFLIXIMAB
     Dosage: MAINTENANCE - 120 MG, EVERY 14 DAYS/ 1 EVERY 2 WEEKS
     Route: 058
     Dates: start: 202405

REACTIONS (3)
  - Rheumatoid arthritis [Unknown]
  - Crohn^s disease [Unknown]
  - Intentional dose omission [Unknown]
